FAERS Safety Report 5006798-6 (Version None)
Quarter: 2006Q2

REPORT INFORMATION
  Report Type: 
  Country: None (occurrence: None)
  Receive Date: 20060519
  Receipt Date: 20060511
  Transmission Date: 20061013
  Serious: Yes (Hospitalization)
  Sender: FDA-Public Use
  Company Number: PHHO2006JP07808

PATIENT
  Age: 82 Year
  Sex: Female
  Weight: 46 kg

DRUGS (8)
  1. DIOVAN [Suspect]
     Indication: HYPERTENSION
     Dosage: 80 MG, QD
     Route: 048
     Dates: start: 20030317, end: 20050629
  2. PENFILL R [Concomitant]
     Indication: DIABETES MELLITUS
  3. KINEDAK [Concomitant]
     Indication: NEUROSIS
  4. ONEALFA [Concomitant]
     Indication: OSTEOPOROSIS
  5. CALCIUM LACTATE [Concomitant]
     Indication: OSTEOPOROSIS
  6. PANALDINE [Suspect]
  7. PLETAL [Suspect]
  8. TENORMIN [Suspect]

REACTIONS (9)
  - ANGINA PECTORIS [None]
  - BLOOD PRESSURE SYSTOLIC DECREASED [None]
  - CATHETERISATION CARDIAC [None]
  - CHEST PAIN [None]
  - CORONARY ANGIOPLASTY [None]
  - CORONARY ARTERY STENOSIS [None]
  - ELECTROCARDIOGRAM ST SEGMENT DEPRESSION [None]
  - ERYTHEMA MULTIFORME [None]
  - HYPOTENSION [None]
